FAERS Safety Report 12207653 (Version 1)
Quarter: 2016Q1

REPORT INFORMATION
  Report Type: Spontaneous
  Country: US (occurrence: US)
  Receive Date: 20160324
  Receipt Date: 20160324
  Transmission Date: 20160526
  Serious: Yes (Other)
  Sender: FDA-Public Use
  Company Number: US-SA-2016SA046408

PATIENT
  Age: 64 Year
  Sex: Female

DRUGS (2)
  1. ALIROCUMAB PREFILLED PEN [Concomitant]
     Active Substance: ALIROCUMAB
  2. PRALUENT [Suspect]
     Active Substance: ALIROCUMAB
     Indication: TYPE IIA HYPERLIPIDAEMIA
     Route: 058

REACTIONS (7)
  - Chromaturia [Unknown]
  - Surgery [Unknown]
  - Hepatic enzyme increased [Unknown]
  - Jaundice [Unknown]
  - Faeces discoloured [Unknown]
  - Pruritus generalised [Unknown]
  - Unevaluable event [Unknown]

NARRATIVE: CASE EVENT DATE: 201602
